FAERS Safety Report 14282817 (Version 1)
Quarter: 2017Q4

REPORT INFORMATION
  Report Type: Spontaneous
  Country: GB (occurrence: GB)
  Receive Date: 20171213
  Receipt Date: 20171213
  Transmission Date: 20180321
  Serious: Yes (Other)
  Sender: FDA-Public Use
  Company Number: GB-ELI_LILLY_AND_COMPANY-GB201712003453

PATIENT
  Age: 16 Year
  Sex: Male

DRUGS (1)
  1. PROZAC [Suspect]
     Active Substance: FLUOXETINE HYDROCHLORIDE
     Indication: PRODUCT USED FOR UNKNOWN INDICATION
     Dosage: 5 ML, UNKNOWN
     Route: 065
     Dates: start: 201709

REACTIONS (12)
  - Syncope [Unknown]
  - Arthralgia [Unknown]
  - Blood disorder [Unknown]
  - Tremor [Unknown]
  - Disorganised speech [Unknown]
  - Confusional state [Unknown]
  - Juvenile idiopathic arthritis [Unknown]
  - Insomnia [Unknown]
  - Abdominal pain upper [Unknown]
  - Liver function test increased [Unknown]
  - Thinking abnormal [Unknown]
  - Drug ineffective [Unknown]
